FAERS Safety Report 9131064 (Version 3)
Quarter: 2013Q2

REPORT INFORMATION
  Report Type: Spontaneous
  Country: JP (occurrence: JP)
  Receive Date: 20130301
  Receipt Date: 20130424
  Transmission Date: 20140414
  Serious: Yes (Disabling)
  Sender: FDA-Public Use
  Company Number: JP-BRISTOL-MYERS SQUIBB COMPANY-17401878

PATIENT
  Age: 56 Year
  Sex: Female
  Weight: 51 kg

DRUGS (2)
  1. BARACLUDE TABS 0.5 MG [Suspect]
     Indication: CHRONIC HEPATITIS B
     Route: 048
     Dates: start: 20100607, end: 20130213
  2. MERCAZOLE [Concomitant]
     Dosage: TAB
     Route: 048
     Dates: start: 20110517

REACTIONS (2)
  - Hyperthyroidism [Recovering/Resolving]
  - Decreased appetite [Recovered/Resolved]
